FAERS Safety Report 9559765 (Version 2)
Quarter: 2013Q4

REPORT INFORMATION
  Report Type: Spontaneous
  Country: ZA (occurrence: ZA)
  Receive Date: 20130927
  Receipt Date: 20131018
  Transmission Date: 20140711
  Serious: Yes (Death, Hospitalization, Other)
  Sender: FDA-Public Use
  Company Number: ZA-ABBVIE-13P-143-1151180-00

PATIENT
  Age: 56 Year
  Sex: Female

DRUGS (4)
  1. HUMIRA [Suspect]
     Indication: CROHN^S DISEASE
     Route: 058
     Dates: start: 20130416, end: 201309
  2. PEXOLA [Concomitant]
     Indication: RESTLESS LEGS SYNDROME
  3. DIOTROXIN [Concomitant]
     Indication: PRODUCT USED FOR UNKNOWN INDICATION
  4. HORMONE REPLACEMENT THERAPY [Concomitant]
     Indication: PRODUCT USED FOR UNKNOWN INDICATION

REACTIONS (23)
  - Acute respiratory distress syndrome [Unknown]
  - Supraventricular tachycardia [Unknown]
  - Hypotension [Unknown]
  - Jaundice [Unknown]
  - Anuria [Unknown]
  - Candida sepsis [Unknown]
  - Bradycardia [Fatal]
  - Abdominal pain [Unknown]
  - Abdominal distension [Unknown]
  - Vomiting [Unknown]
  - Dehydration [Unknown]
  - Abdominal tenderness [Unknown]
  - Bowel movement irregularity [Unknown]
  - Gastrointestinal disorder [Unknown]
  - Gastrointestinal disorder [Unknown]
  - Small intestinal obstruction [Unknown]
  - Ileus [Unknown]
  - Infection [Unknown]
  - Respiratory rate increased [Unknown]
  - Cardiac failure [Unknown]
  - Gastrointestinal disorder [Unknown]
  - Abscess [Unknown]
  - Wound sepsis [Unknown]
